FAERS Safety Report 4360791-5 (Version None)
Quarter: 2004Q2

REPORT INFORMATION
  Report Type: 
  Country: None (occurrence: None)
  Receive Date: 20040517
  Receipt Date: 20040504
  Transmission Date: 20050107
  Serious: Yes (Other)
  Sender: FDA-Public Use
  Company Number: 2004212186NO

PATIENT
  Sex: Female

DRUGS (1)
  1. DELTA-CORTEF [Suspect]

REACTIONS (2)
  - RENAL FAILURE [None]
  - RENAL TRANSPLANT [None]
